FAERS Safety Report 9549917 (Version 2)
Quarter: 2013Q4

REPORT INFORMATION
  Report Type: Report from Study
  Country: CH (occurrence: CH)
  Receive Date: 20130924
  Receipt Date: 20131001
  Transmission Date: 20140711
  Serious: Yes (Hospitalization)
  Sender: FDA-Public Use
  Company Number: CH-TEVA-433890USA

PATIENT
  Age: 75 Year
  Sex: Male

DRUGS (9)
  1. BENDAMUSTINE [Suspect]
     Indication: DIFFUSE LARGE B-CELL LYMPHOMA REFRACTORY
     Dosage: UID/QD
     Route: 042
     Dates: start: 20130902
  2. BENDAMUSTINE [Suspect]
     Route: 042
     Dates: start: 20130903
  3. RITUXIMAB [Suspect]
     Indication: DIFFUSE LARGE B-CELL LYMPHOMA REFRACTORY
     Route: 042
     Dates: start: 20130902
  4. LENALIDOMIDE [Suspect]
     Indication: DIFFUSE LARGE B-CELL LYMPHOMA REFRACTORY
     Route: 048
     Dates: start: 20130902
  5. PRAVASTATIN [Concomitant]
     Route: 048
  6. ASPIRIN [Concomitant]
     Route: 048
  7. ALLOPURINOL [Concomitant]
     Route: 048
  8. AMLODIPIN [Concomitant]
     Route: 048
     Dates: start: 20060206, end: 20130912
  9. OLMETEC [Concomitant]
     Dosage: 25-30 MG
     Route: 048
     Dates: start: 20060206, end: 20130912

REACTIONS (1)
  - Syncope [Recovered/Resolved]
